FAERS Safety Report 7882138 (Version 6)
Quarter: 2013Q2

REPORT INFORMATION
  Report Type: Spontaneous
  Country: US (occurrence: US)
  Receive Date: 20110401
  Receipt Date: 20130423
  Transmission Date: 20140414
  Serious: Yes (Hospitalization, Other)
  Sender: FDA-Public Use
  Company Number: US-BAYER-2011-027865

PATIENT
  Age: 38 Year
  Sex: Female

DRUGS (9)
  1. YAZ [Suspect]
     Indication: CONTRACEPTION
     Dosage: UNK
     Route: 048
     Dates: start: 200702, end: 200705
  2. ALBUTEROL [Concomitant]
     Dosage: 90 UNK, UNK
     Dates: start: 20070207
  3. SINGULAIR [Concomitant]
     Dosage: 10 MG, UNK
     Dates: start: 20070207
  4. TENUATE [Concomitant]
     Dosage: 75 MG, UNK
     Dates: start: 20070207
  5. MEDROL [Concomitant]
     Dosage: UNK
     Dates: start: 20070207
  6. PROZAC [Concomitant]
     Dosage: 20 MG, UNK
     Dates: start: 20070207
  7. DIETHYLPROPION [Concomitant]
  8. PRILOSEC [Concomitant]
     Dosage: 20 MG DAILY, UNK
     Route: 048
  9. ADVAIR [Concomitant]
     Dosage: 250/50 INHALER, BID

REACTIONS (9)
  - Pulmonary embolism [Recovered/Resolved]
  - Cholecystectomy [None]
  - Cholelithiasis [None]
  - Injury [None]
  - Pain [None]
  - General physical health deterioration [None]
  - Anxiety [None]
  - Anhedonia [None]
  - Emotional distress [None]
